FAERS Safety Report 14255666 (Version 1)
Quarter: 2017Q4

REPORT INFORMATION
  Report Type: Spontaneous
  Country: US (occurrence: US)
  Receive Date: 20171206
  Receipt Date: 20171206
  Transmission Date: 20180321
  Serious: No
  Sender: FDA-Public Use
  Company Number: US-JUBILANT CADISTA PHARMACEUTICALS-2017JUB00242

PATIENT
  Age: 97 Year
  Sex: Male
  Weight: 64.4 kg

DRUGS (9)
  1. METHYLPREDNISOLONE. [Suspect]
     Active Substance: METHYLPREDNISOLONE
     Dosage: 24 MG, 1X/DAY 6 TABLETS (4 MG EACH) TAKEN AT 4 TIMES THROUGHOUT DAY
     Route: 048
     Dates: start: 20170629, end: 20170629
  2. METHYLPREDNISOLONE. [Suspect]
     Active Substance: METHYLPREDNISOLONE
     Dosage: 4 MG, 4X/DAY
     Route: 048
     Dates: start: 20170701, end: 20170701
  3. FINASTERIDE. [Concomitant]
     Active Substance: FINASTERIDE
     Indication: PROSTATOMEGALY
  4. METHYLPREDNISOLONE. [Suspect]
     Active Substance: METHYLPREDNISOLONE
     Dosage: 20 MG, 1X/DAY, 5 TABLETS (4 MG EACH) TAKEN AT 4 TIMES THROUGHOUT DAY
     Dates: start: 20170630, end: 20170630
  5. TYLENOL [Concomitant]
     Active Substance: ACETAMINOPHEN
     Dosage: 1000 MG, UP TO 2X/DAY AS NEEDED
  6. XANAX [Concomitant]
     Active Substance: ALPRAZOLAM
     Indication: NERVOUS SYSTEM DISORDER
     Dosage: UNK, AS NEEDED
  7. METHYLPREDNISOLONE. [Suspect]
     Active Substance: METHYLPREDNISOLONE
     Dosage: 4 MG, 2X/DAY
     Dates: start: 20170703, end: 20170703
  8. TIZANIDINE. [Concomitant]
     Active Substance: TIZANIDINE
     Indication: MUSCLE SPASMS
     Dosage: UNK, AS NEEDED
  9. METHYLPREDNISOLONE. [Suspect]
     Active Substance: METHYLPREDNISOLONE
     Dosage: 4 MG, 3X/DAY
     Route: 048
     Dates: start: 20170702, end: 20170702

REACTIONS (4)
  - Lacrimation increased [Not Recovered/Not Resolved]
  - Dizziness [Recovering/Resolving]
  - Head discomfort [Recovering/Resolving]
  - Asthenopia [Not Recovered/Not Resolved]

NARRATIVE: CASE EVENT DATE: 20170630
